FAERS Safety Report 6635344-6 (Version None)
Quarter: 2010Q1

REPORT INFORMATION
  Report Type: 
  Country: None (occurrence: None)
  Receive Date: 20100315
  Receipt Date: 20100312
  Transmission Date: 20100710
  Serious: Yes (Death, Hospitalization)
  Sender: FDA-Public Use
  Company Number: JP-ELI_LILLY_AND_COMPANY-JP200911007362

PATIENT
  Sex: Female
  Weight: 54 kg

DRUGS (14)
  1. GEMZAR [Suspect]
     Indication: BLADDER CANCER STAGE IV
     Dosage: 1400 MG, OTHER
     Route: 042
     Dates: start: 20090518, end: 20090718
  2. GEMZAR [Suspect]
     Dosage: 1500 MG, OTHER
     Route: 042
     Dates: start: 20091027, end: 20091027
  3. TAXOTERE [Concomitant]
     Indication: BLADDER CANCER STAGE IV
     Dosage: 100 MG, DAILY (1/D)
     Route: 042
     Dates: start: 20091027, end: 20091027
  4. CARBOPLATIN [Concomitant]
     Indication: BLADDER CANCER STAGE IV
     Dosage: 200 MG, DAILY (1/D)
     Route: 042
     Dates: start: 20091027, end: 20091027
  5. DEXART [Concomitant]
     Indication: ALLERGY PROPHYLAXIS
     Dosage: 8 MG, DAILY (1/D)
     Route: 042
     Dates: start: 20091027, end: 20091027
  6. CISPLATIN [Concomitant]
     Indication: BLADDER CANCER STAGE IV
     Dosage: 40 MG, OTHER
     Route: 042
     Dates: start: 20090518, end: 20090601
  7. CISPLATIN [Concomitant]
     Dosage: 70 MG, OTHER
     Route: 042
     Dates: start: 20090623, end: 20090718
  8. LAC B [Concomitant]
     Dosage: 3 G, DAILY (1/D)
     Route: 048
     Dates: start: 20091029, end: 20091029
  9. NOVAMIN /00013301/ [Concomitant]
     Dosage: 15 MG, DAILY (1/D)
     Route: 048
     Dates: start: 20091020, end: 20091029
  10. MAGMITT [Concomitant]
     Dosage: 750 MG, DAILY (1/D)
     Route: 048
     Dates: start: 20091020, end: 20091029
  11. PURSENNID /00571901/ [Concomitant]
     Dosage: 24 MG, DAILY (1/D)
     Route: 048
     Dates: start: 20091020, end: 20091029
  12. LOXONIN [Concomitant]
     Dosage: 180 MG, DAILY (1/D)
     Route: 048
     Dates: start: 20091020, end: 20091029
  13. MUCOSTA [Concomitant]
     Dosage: 300 MG, DAILY (1/D)
     Route: 048
     Dates: start: 20091020, end: 20091029
  14. BLOSTAR M [Concomitant]
     Dosage: 20 MG, DAILY (1/D)
     Route: 048
     Dates: start: 20091020, end: 20091029

REACTIONS (3)
  - BLADDER CANCER [None]
  - DUODENAL PERFORATION [None]
  - GASTRIC ULCER [None]
